FAERS Safety Report 9177251 (Version 1)
Quarter: 2013Q1

REPORT INFORMATION
  Report Type: Spontaneous
  Country: US (occurrence: None)
  Receive Date: 20130320
  Receipt Date: 20130320
  Transmission Date: 20140127
  Serious: No
  Sender: FDA-Public Use
  Company Number: None

PATIENT
  Age: 60 Year
  Sex: Female
  Weight: 60 kg

DRUGS (1)
  1. FLUTICASONE [Suspect]
     Indication: SINUSITIS
     Dosage: 2 PUFF(S) EVERY DAY NASAL
     Route: 045
     Dates: start: 20120901, end: 20130109

REACTIONS (1)
  - Sinusitis [None]
